FAERS Safety Report 10044359 (Version 1)
Quarter: 2014Q1

REPORT INFORMATION
  Report Type: Spontaneous
  Country: CH (occurrence: None)
  Receive Date: 20140326
  Receipt Date: 20140326
  Transmission Date: 20141002
  Serious: Yes (Death, Other)
  Sender: FDA-Public Use
  Company Number: 2014081515

PATIENT
  Age: 53 Year
  Sex: Female

DRUGS (15)
  1. FRAGMIN [Suspect]
     Indication: THROMBOSIS PROPHYLAXIS
     Route: 058
     Dates: start: 20131116, end: 2013
  2. AUGMENTIN [Suspect]
     Indication: MULTIPLE INJURIES
     Route: 040
  3. LASIX [Suspect]
     Indication: CARDIOVASCULAR DISORDER
  4. HALDOL [Suspect]
     Indication: DELIRIUM
     Dates: start: 201311, end: 201312
  5. SEROQUEL [Suspect]
     Indication: DELIRIUM
     Dates: start: 201311, end: 201312
  6. INVANZ [Suspect]
     Route: 040
     Dates: start: 20131201, end: 20131210
  7. TEMESTA (LORAZEPAM) [Concomitant]
  8. DORMICUM TABLET ^ROCHE^ (MIDAZOLAM MALEATE) [Concomitant]
  9. FLAGYL ^AVENTIS^ (METRONDIAZOLE) [Concomitant]
  10. MORPHIN (MORPHINE SULFATE ) [Concomitant]
  11. NOVALGIN (METAMIZOLE SODIUM) [Concomitant]
  12. VANCOMYCIN [Concomitant]
  13. CIPROXIN (CIPROFLOXACIN) [Concomitant]
  14. DALACIN (CLINDAMYCIN HYDROCHLORIDE) (CLINDAMYCIN HYDROCHLORIDE) [Concomitant]
  15. TAVANIC (LEVOFLOXACIN) [Concomitant]

REACTIONS (9)
  - Drug reaction with eosinophilia and systemic symptoms [None]
  - Eosinophilic myocarditis [None]
  - Cardiac arrest [None]
  - Hypoxic-ischaemic encephalopathy [None]
  - Brain oedema [None]
  - Allergic hepatitis [None]
  - Eosinophilic pneumonia [None]
  - Alveolitis [None]
  - Bone marrow eosinophilic leukocyte count increased [None]
